FAERS Safety Report 4782020-0 (Version None)
Quarter: 2005Q3

REPORT INFORMATION
  Report Type: 
  Country: None (occurrence: None)
  Receive Date: 20050928
  Receipt Date: 20050919
  Transmission Date: 20060218
  Serious: Yes (Death, Hospitalization, Other)
  Sender: FDA-Public Use
  Company Number: US-MERCK-0509USA02635

PATIENT
  Age: 88 Year
  Sex: Female

DRUGS (10)
  1. VIOXX [Suspect]
     Indication: ANALGESIC EFFECT
     Route: 048
  2. VIOXX [Suspect]
     Route: 048
     Dates: start: 20011220, end: 20020214
  3. VIOXX [Suspect]
     Route: 048
     Dates: start: 20011102
  4. VIOXX [Suspect]
     Route: 065
     Dates: end: 20011220
  5. VIOXX [Suspect]
     Route: 048
     Dates: start: 20020422
  6. PROTONIX [Concomitant]
     Route: 065
  7. KLONOPIN [Concomitant]
     Route: 065
  8. IMDUR [Concomitant]
     Route: 065
  9. VASOTEC [Concomitant]
     Route: 048
  10. AMANTADINE HYDROCHLORIDE [Concomitant]
     Route: 048

REACTIONS (21)
  - AORTIC VALVE INCOMPETENCE [None]
  - ASTHENIA [None]
  - BACTERIA URINE IDENTIFIED [None]
  - CEREBROVASCULAR ACCIDENT [None]
  - COUGH [None]
  - DIZZINESS [None]
  - DYSURIA [None]
  - ERYTHEMA [None]
  - HEADACHE [None]
  - HUMERUS FRACTURE [None]
  - HYPERTENSION [None]
  - LETHARGY [None]
  - MITRAL VALVE INCOMPETENCE [None]
  - MUSCULOSKELETAL STIFFNESS [None]
  - MYOCARDIAL INFARCTION [None]
  - NECK PAIN [None]
  - PULMONARY HYPERTENSION [None]
  - PULMONARY VALVE INCOMPETENCE [None]
  - TREMOR [None]
  - URINARY TRACT INFECTION [None]
  - VOMITING [None]
